FAERS Safety Report 16573846 (Version 2)
Quarter: 2019Q3

REPORT INFORMATION
  Report Type: Spontaneous
  Country: CN (occurrence: CN)
  Receive Date: 20190715
  Receipt Date: 20190719
  Transmission Date: 20191004
  Serious: Yes (Other)
  Sender: FDA-Public Use
  Company Number: CN-PFIZER INC-2019296744

PATIENT
  Age: 69 Year
  Sex: Male

DRUGS (6)
  1. VORICONAZOLE. [Suspect]
     Active Substance: VORICONAZOLE
     Dosage: 0.1 G, 2X/DAY(Q12H; EVERY 12 HOURS)
     Route: 041
  2. COMPOUND METHOXYPHENAMINE [Concomitant]
     Dosage: 93 MG, 3X/DAY
     Route: 048
     Dates: start: 20150423
  3. VORICONAZOLE. [Suspect]
     Active Substance: VORICONAZOLE
     Indication: FUNGAL INFECTION
     Dosage: 0.3 G, 2X/DAY (Q12H; EVERY 12 HOURS)
     Route: 041
     Dates: start: 20150421
  4. ASARONE [Concomitant]
     Active Substance: .ALPHA.-ASARONE
     Dosage: 24 MG, 2X/DAY (Q12H)
     Route: 041
     Dates: start: 20150421
  5. VORICONAZOLE. [Suspect]
     Active Substance: VORICONAZOLE
     Dosage: 0.2 G, 2X/DAY(Q12H; EVERY 12 HOURS)
     Route: 041
     Dates: start: 20150422
  6. DIPROPHYLLINE [Concomitant]
     Active Substance: DYPHYLLINE
     Dosage: 0.25 G, 2X/DAY(Q12H)
     Route: 041
     Dates: start: 20150421

REACTIONS (2)
  - Liver injury [Recovering/Resolving]
  - Visual impairment [Recovered/Resolved]

NARRATIVE: CASE EVENT DATE: 20150423
